FAERS Safety Report 16758562 (Version 1)
Quarter: 2019Q3

REPORT INFORMATION
  Report Type: Report from Study
  Country: US (occurrence: US)
  Receive Date: 20190830
  Receipt Date: 20190830
  Transmission Date: 20191005
  Serious: Yes (Hospitalization)
  Sender: FDA-Public Use
  Company Number: US-BAYER-2019-156969

PATIENT
  Sex: Female

DRUGS (3)
  1. STIVARGA [Suspect]
     Active Substance: REGORAFENIB
     Dosage: 160 MG DAILY SWALLOW TABLETS WHOLE WITH WATER AND LOW FAT MEAL (THIRD WEEK)
     Route: 048
  2. STIVARGA [Suspect]
     Active Substance: REGORAFENIB
     Dosage: 120 MG DAILY SWALLOW TABLETS WHOLE WITH WATER AND LOW FAT MEAL (SECOND WEEK)
     Route: 048
  3. STIVARGA [Suspect]
     Active Substance: REGORAFENIB
     Dosage: 80 MG, QD SWALLOW TABLETS WHOLE WITH WATER AND LOW FAT MEAL (FIRST WEEK)
     Route: 048

REACTIONS (2)
  - Off label use [None]
  - Hospitalisation [Unknown]
